FAERS Safety Report 10498249 (Version 1)
Quarter: 2014Q4

REPORT INFORMATION
  Report Type: Spontaneous
  Country: US (occurrence: US)
  Receive Date: 20141006
  Receipt Date: 20141006
  Transmission Date: 20150528
  Serious: Yes (Other)
  Sender: FDA-Public Use
  Company Number: US-ACTAVIS-2014-21138

PATIENT
  Sex: Male

DRUGS (3)
  1. ALBUTEROL SULFATE (AMALLC) [Suspect]
     Active Substance: ALBUTEROL SULFATE
     Indication: PRODUCT USED FOR UNKNOWN INDICATION
     Dosage: UNK, DAILY
     Route: 055
  2. BUDESONIDE. [Concomitant]
     Active Substance: BUDESONIDE
     Indication: PRODUCT USED FOR UNKNOWN INDICATION
     Dosage: UNK, UNKNOWN
     Route: 065
  3. BROVANA [Suspect]
     Active Substance: ARFORMOTEROL TARTRATE
     Indication: PNEUMONIA
     Dosage: 15 MICROGRAMS/ 2 MILLILITERS, BID
     Route: 055
     Dates: start: 201408, end: 201408

REACTIONS (3)
  - Swollen tongue [Unknown]
  - Swelling face [Unknown]
  - Headache [Recovered/Resolved]
